FAERS Safety Report 9393635 (Version 3)
Quarter: 2013Q3

REPORT INFORMATION
  Report Type: Spontaneous
  Country: ES (occurrence: None)
  Receive Date: 20130801
  Receipt Date: 20130822
  Transmission Date: 20140515
  Serious: Yes (Life-Threatening, Hospitalization)
  Sender: FDA-Public Use
  Company Number: SYM-2013-05318

PATIENT
  Age: 48 Year
  Sex: Female

DRUGS (4)
  1. 5-FU [Suspect]
     Indication: BREAST CANCER
     Route: 040
     Dates: start: 19990809, end: 19990809
  2. DOXORUBICIN [Suspect]
     Indication: BREAST CANCER
     Route: 040
     Dates: start: 19990809, end: 19990809
  3. CYCLOPHOSPHAMIDE [Suspect]
     Indication: BREAST CANCER
     Route: 040
     Dates: start: 19990809, end: 19990809
  4. TAMOXIFEN (TAMOXIFEN) [Concomitant]

REACTIONS (6)
  - Cervical dysplasia [None]
  - Cardiac disorder [None]
  - Congestive cardiomyopathy [None]
  - Abdominal pain upper [None]
  - Dyspnoea [None]
  - Orthopnoea [None]
